FAERS Safety Report 4999200-1 (Version None)
Quarter: 2006Q2

REPORT INFORMATION
  Report Type: 
  Country: None (occurrence: None)
  Receive Date: 20060509
  Receipt Date: 20060509
  Transmission Date: 20061013
  Serious: Yes (Hospitalization)
  Sender: FDA-Public Use
  Company Number: None

PATIENT
  Sex: Male
  Weight: 66.588 kg

DRUGS (16)
  1. BACTRIM DS [Suspect]
     Indication: URINARY TRACT INFECTION
     Dosage: 800/160 MG BID PO
     Route: 048
  2. ZOCOR [Suspect]
     Indication: HYPERLIPIDAEMIA
     Dosage: 80 MG 1QD PO
     Route: 048
  3. GEMFIBROZIL [Suspect]
     Indication: HYPERLIPIDAEMIA
     Dosage: 600 MG BID PO
     Route: 048
  4. ABSORBASE TOP OINT [Concomitant]
  5. ACETAMINOPHEN [Concomitant]
  6. COMBIVENT [Concomitant]
  7. ASPIRIN [Concomitant]
  8. CLOPIDOGREL BISULFATE [Concomitant]
  9. FELODIPINE [Concomitant]
  10. GEMFIBROZIL [Concomitant]
  11. GOSERELIN ACETATE [Concomitant]
  12. LISINOPRIL [Concomitant]
  13. METOPROLOL TARTRATE [Concomitant]
  14. MOMETASONE FUROATE [Concomitant]
  15. NITROGLYCERIN [Concomitant]
  16. OMEPRAZOLE [Concomitant]

REACTIONS (5)
  - ASTHENIA [None]
  - DIFFICULTY IN WALKING [None]
  - DRUG INTERACTION [None]
  - FALL [None]
  - RHABDOMYOLYSIS [None]
